FAERS Safety Report 6145422-6 (Version None)
Quarter: 2009Q2

REPORT INFORMATION
  Report Type: 
  Country: None (occurrence: None)
  Receive Date: 20090402
  Receipt Date: 20090318
  Transmission Date: 20091009
  Serious: Yes (Hospitalization)
  Sender: FDA-Public Use
  Company Number: 2009S1005043

PATIENT
  Age: 53 Year
  Sex: Female
  Weight: 79.3795 kg

DRUGS (3)
  1. IPRATROPIUM BROMIDE [Suspect]
     Dosage: 2.5 MG; DAILY; INHALATION, 0.5 MG; DAILY; INHALATION
     Route: 055
     Dates: start: 20090301, end: 20090101
  2. IPRATROPIUM BROMIDE [Suspect]
     Dosage: 2.5 MG; DAILY; INHALATION, 0.5 MG; DAILY; INHALATION
     Route: 055
     Dates: start: 20090301, end: 20090101
  3. OXYGEN [Concomitant]

REACTIONS (5)
  - CONDITION AGGRAVATED [None]
  - DRUG INEFFECTIVE [None]
  - DYSPNOEA [None]
  - OXYGEN SATURATION DECREASED [None]
  - PRODUCT QUALITY ISSUE [None]
